FAERS Safety Report 21263153 (Version 1)
Quarter: 2022Q3

REPORT INFORMATION
  Report Type: Spontaneous
  Country: FR (occurrence: FR)
  Receive Date: 20220828
  Receipt Date: 20220828
  Transmission Date: 20221026
  Serious: Yes (Death, Hospitalization, Other)
  Sender: FDA-Public Use
  Company Number: None

PATIENT
  Age: 67 Year
  Sex: Male

DRUGS (1)
  1. OPDIVO [Suspect]
     Active Substance: NIVOLUMAB
     Indication: Tongue neoplasm malignant stage unspecified
     Dosage: 240 MG, 1 CYCLICAL
     Route: 042
     Dates: start: 20190802, end: 20201013

REACTIONS (2)
  - Myositis [Fatal]
  - Myocarditis [Fatal]

NARRATIVE: CASE EVENT DATE: 20200306
